FAERS Safety Report 7779558-0 (Version None)
Quarter: 2011Q3

REPORT INFORMATION
  Report Type: 
  Country: None (occurrence: None)
  Receive Date: 20110927
  Receipt Date: 20110916
  Transmission Date: 20111222
  Serious: Yes (Other)
  Sender: FDA-Public Use
  Company Number: FR-AMGEN-FRASP2011014377

PATIENT
  Age: 54 Year
  Sex: Female
  Weight: 90 kg

DRUGS (6)
  1. METHOTREXATE SODIUM [Concomitant]
     Indication: RHEUMATOID ARTHRITIS
     Dosage: 20 MG, WEEKLY
     Route: 058
     Dates: start: 20020101
  2. SPECIAFOLDINE [Concomitant]
     Dosage: 5 MG, 3 TIMES/WK
     Dates: start: 20020101
  3. PREDNISONE [Concomitant]
     Indication: RHEUMATOID ARTHRITIS
     Dosage: 10 MG, 1X/DAY
     Route: 048
     Dates: start: 20020101
  4. CYTOTEC [Concomitant]
     Indication: RHEUMATOID ARTHRITIS
     Dosage: 2 TABLETS DAILY
     Dates: start: 20090101
  5. ENBREL [Suspect]
     Indication: RHEUMATOID ARTHRITIS
     Dosage: 50 MG, WEEKLY
     Route: 058
     Dates: start: 20100630, end: 20110304
  6. ACETAMINOPHEN [Concomitant]
     Indication: RHEUMATOID ARTHRITIS
     Dosage: 1 TO 3 TABLETS DAILY
     Dates: start: 20020101

REACTIONS (1)
  - KERATITIS INTERSTITIAL [None]
